FAERS Safety Report 13261431 (Version 2)
Quarter: 2017Q1

REPORT INFORMATION
  Report Type: Spontaneous
  Country: US (occurrence: US)
  Receive Date: 20170222
  Receipt Date: 20170309
  Transmission Date: 20170428
  Serious: Yes (Life-Threatening, Hospitalization, Disabling, Other)
  Sender: FDA-Public Use
  Company Number: US-009507513-1702USA008071

PATIENT
  Age: 16 Year
  Sex: Female
  Weight: 64.9 kg

DRUGS (5)
  1. HYDROQUINONE. [Concomitant]
     Active Substance: HYDROQUINONE
  2. PRINIVIL [Concomitant]
     Active Substance: LISINOPRIL
     Route: 048
  3. NEXPLANON [Suspect]
     Active Substance: ETONOGESTREL
     Indication: CONTRACEPTION
     Dosage: 1 ROD, UNK
     Route: 059
     Dates: start: 20160802
  4. AMLODIPINE [Concomitant]
     Active Substance: AMLODIPINE BESYLATE
  5. MYCOPHENOLATE MOFETIL. [Concomitant]
     Active Substance: MYCOPHENOLATE MOFETIL

REACTIONS (2)
  - Ovarian cancer [Recovering/Resolving]
  - Lymphadenectomy [Recovering/Resolving]

NARRATIVE: CASE EVENT DATE: 20170124
